FAERS Safety Report 4422353-0 (Version None)
Quarter: 2004Q3

REPORT INFORMATION
  Report Type: 
  Country: None (occurrence: None)
  Receive Date: 20040810
  Receipt Date: 20040728
  Transmission Date: 20050211
  Serious: Yes (Death)
  Sender: FDA-Public Use
  Company Number: 200417450GDDC

PATIENT
  Age: 64 Year
  Sex: Female

DRUGS (3)
  1. TAXOTERE [Suspect]
     Indication: BREAST CANCER METASTATIC
     Route: 042
     Dates: start: 20040702, end: 20040702
  2. TRASTUZUMAB [Suspect]
     Indication: BREAST CANCER METASTATIC
     Route: 042
     Dates: start: 20040702, end: 20040702
  3. ONDANSETRON [Concomitant]
     Dates: start: 20040708, end: 20040708

REACTIONS (6)
  - DECREASED APPETITE [None]
  - DIARRHOEA [None]
  - GENERAL PHYSICAL HEALTH DETERIORATION [None]
  - HYPOVOLAEMIC SHOCK [None]
  - NAUSEA [None]
  - VOMITING [None]
